FAERS Safety Report 9859984 (Version 1)
Quarter: 2014Q1

REPORT INFORMATION
  Report Type: Spontaneous
  Country: US (occurrence: US)
  Receive Date: 20140131
  Receipt Date: 20140131
  Transmission Date: 20141002
  Serious: Yes (Other)
  Sender: FDA-Public Use
  Company Number: US-RB-062969-14

PATIENT
  Sex: Female

DRUGS (4)
  1. SUBOXONE TABLET [Suspect]
     Indication: DRUG DEPENDENCE
     Route: 060
     Dates: end: 201304
  2. BUPRENORPHINE GENERIC [Suspect]
     Indication: DRUG DEPENDENCE
     Route: 060
     Dates: start: 201304, end: 2013
  3. BUPRENORPHINE GENERIC [Suspect]
     Route: 060
     Dates: start: 2013, end: 201401
  4. NICOTINE [Concomitant]
     Indication: NICOTINE DEPENDENCE
     Dosage: 10 CIGARETTES DAILY
     Route: 055

REACTIONS (6)
  - Maternal exposure during pregnancy [Recovered/Resolved]
  - Nausea [Recovered/Resolved]
  - Placenta praevia [Recovered/Resolved]
  - Vaginal haemorrhage [Recovered/Resolved]
  - Foetal heart rate decreased [Recovered/Resolved]
  - Premature delivery [Recovered/Resolved]
